FAERS Safety Report 15227585 (Version 3)
Quarter: 2018Q3

REPORT INFORMATION
  Report Type: Spontaneous
  Country: US (occurrence: US)
  Receive Date: 20180801
  Receipt Date: 20180824
  Transmission Date: 20181010
  Serious: Yes (Hospitalization)
  Sender: FDA-Public Use
  Company Number: US-VERTEX PHARMACEUTICALS-2018-005007

PATIENT
  Age: 20 Year
  Sex: Male

DRUGS (16)
  1. ZENPEP [Concomitant]
     Active Substance: PANCRELIPASE AMYLASE\PANCRELIPASE LIPASE\PANCRELIPASE PROTEASE
  2. URSODIOL. [Concomitant]
     Active Substance: URSODIOL
  3. VITAMIN D3 [Concomitant]
     Active Substance: CHOLECALCIFEROL
  4. FLONASE                            /00908302/ [Concomitant]
     Active Substance: MOMETASONE FUROATE
  5. HYPERSAL [Concomitant]
  6. VENLAFAXINE [Concomitant]
     Active Substance: VENLAFAXINE HYDROCHLORIDE
  7. ALBUTEROL                          /00139501/ [Concomitant]
     Active Substance: ALBUTEROL
  8. FOSAMAX [Concomitant]
     Active Substance: ALENDRONATE SODIUM
  9. INSULIN [Concomitant]
     Active Substance: INSULIN NOS
  10. SYMDEKO [Suspect]
     Active Substance: IVACAFTOR\TEZACAFTOR
     Indication: CYSTIC FIBROSIS
     Dosage: 100MG TEZACAFTOR/150MG IVACAFTOR AM; 150MG IVACAFTOR PM WITH FAT CONTAINING FOOD
     Route: 048
     Dates: start: 20180621
  11. ABILIFY [Concomitant]
     Active Substance: ARIPIPRAZOLE
  12. VITAMIN A                          /00056001/ [Concomitant]
     Active Substance: RETINOL
  13. DULERA [Concomitant]
     Active Substance: FORMOTEROL FUMARATE DIHYDRATE\MOMETASONE FUROATE
  14. AQUADEKS                           /07679501/ [Concomitant]
     Active Substance: MINERALS\VITAMINS
  15. PULMOZYME [Concomitant]
     Active Substance: DORNASE ALFA
  16. NOVOLOG [Concomitant]
     Active Substance: INSULIN ASPART

REACTIONS (1)
  - Sinus operation [Recovering/Resolving]

NARRATIVE: CASE EVENT DATE: 20180719
